FAERS Safety Report 8833813 (Version 3)
Quarter: 2013Q1

REPORT INFORMATION
  Report Type: Spontaneous
  Country: GB (occurrence: GB)
  Receive Date: 20121011
  Receipt Date: 20130306
  Transmission Date: 20140127
  Serious: Yes (Hospitalization, Other)
  Sender: FDA-Public Use
  Company Number: GB-ELI_LILLY_AND_COMPANY-GB201210001356

PATIENT
  Age: 57 Year
  Sex: Male

DRUGS (9)
  1. CIALIS [Suspect]
     Indication: ERECTILE DYSFUNCTION
     Dosage: 20 MG, PRN
     Route: 048
     Dates: start: 20060704, end: 20120215
  2. DOXAZOSIN [Concomitant]
     Dosage: 4 MG, QD
  3. FEXOFENADINE [Concomitant]
     Dosage: 100 MG, QD
  4. INDAPAMIDE [Concomitant]
     Dosage: 1.5 MG, QD
  5. LOSARTAN [Concomitant]
     Dosage: 100 MG, QD
  6. OMEPRAZOLE [Concomitant]
     Dosage: 20 MG, UNK
  7. SIMVASTATIN [Concomitant]
     Dosage: 40 MG, UNK
  8. CO-DYDRAMOL [Concomitant]
     Dosage: UNK, QID
  9. CO-DYDRAMOL [Concomitant]
     Dosage: UNK, PRN

REACTIONS (3)
  - Gastrointestinal haemorrhage [Recovered/Resolved]
  - Iron deficiency anaemia [Recovered/Resolved]
  - Telangiectasia [Unknown]
